FAERS Safety Report 6625836-8 (Version None)
Quarter: 2010Q1

REPORT INFORMATION
  Report Type: 
  Country: None (occurrence: None)
  Receive Date: 20100310
  Receipt Date: 20100303
  Transmission Date: 20100710
  Serious: Yes (Hospitalization)
  Sender: FDA-Public Use
  Company Number: US-ELI_LILLY_AND_COMPANY-US201003001050

PATIENT
  Age: 73 Year
  Sex: Female

DRUGS (3)
  1. HUMALOG [Suspect]
     Dosage: 4 U, UNK
  2. HUMALOG [Suspect]
     Dosage: 4 U, UNK
  3. LANTUS [Concomitant]

REACTIONS (12)
  - ANGER [None]
  - BLOOD GLUCOSE DECREASED [None]
  - BLOOD GLUCOSE INCREASED [None]
  - CONFUSIONAL STATE [None]
  - FRUSTRATION [None]
  - GAIT DISTURBANCE [None]
  - MUSCULAR WEAKNESS [None]
  - NERVOUSNESS [None]
  - OSTEOARTHRITIS [None]
  - PNEUMONIA [None]
  - PRODUCT QUALITY ISSUE [None]
  - TREMOR [None]
